FAERS Safety Report 6847687-1 (Version None)
Quarter: 2010Q3

REPORT INFORMATION
  Report Type: 
  Country: None (occurrence: None)
  Receive Date: 20100716
  Receipt Date: 20100706
  Transmission Date: 20110219
  Serious: Yes (Hospitalization, Disabling)
  Sender: FDA-Public Use
  Company Number: PHHO2010US10501

PATIENT
  Sex: Female
  Weight: 99.7 kg

DRUGS (1)
  1. CERTICAN [Suspect]
     Indication: RENAL TRANSPLANT
     Dosage: 3MG/DAY
     Route: 048
     Dates: start: 20100502, end: 20100706

REACTIONS (4)
  - CORONARY ARTERY DISEASE [None]
  - DYSPNOEA [None]
  - PULMONARY HYPERTENSION [None]
  - PULMONARY TOXICITY [None]
